FAERS Safety Report 4415864-5 (Version None)
Quarter: 2004Q3

REPORT INFORMATION
  Report Type: 
  Country: None (occurrence: None)
  Receive Date: 20040805
  Receipt Date: 20040803
  Transmission Date: 20050211
  Serious: Yes (Hospitalization)
  Sender: FDA-Public Use
  Company Number: PHNR2004AU01275

PATIENT
  Age: 73 Year
  Sex: Female

DRUGS (3)
  1. LAMISIL [Suspect]
     Indication: DERMATOPHYTOSIS
     Dosage: 250 MG, QD
     Route: 048
     Dates: start: 19940101, end: 19940831
  2. BETALOC [Suspect]
     Indication: ESSENTIAL HYPERTENSION
     Dosage: 100 MG, QD
     Route: 048
     Dates: start: 19890101
  3. MODURETIC 5-50 [Concomitant]
     Indication: ESSENTIAL HYPERTENSION
     Dosage: 5.0MG/ALTERNATE DAYS
     Route: 048
     Dates: start: 19910101

REACTIONS (7)
  - AGRANULOCYTOSIS [None]
  - ANOREXIA [None]
  - CANDIDIASIS [None]
  - MOUTH ULCERATION [None]
  - PHARYNGITIS [None]
  - PYREXIA [None]
  - TONGUE ULCERATION [None]
